FAERS Safety Report 6269902-8 (Version None)
Quarter: 2009Q3

REPORT INFORMATION
  Report Type: 
  Country: None (occurrence: None)
  Receive Date: 20090714
  Receipt Date: 20090703
  Transmission Date: 20100115
  Serious: Yes (Other)
  Sender: FDA-Public Use
  Company Number: DSM-2009-00951

PATIENT
  Age: 63 Year

DRUGS (2)
  1. IXIA (OLMESARTAN MEDOXOMIL) (OLMESARTAN MEDOXOMIL) [Suspect]
     Indication: DRUG USE FOR UNKNOWN INDICATION
     Dosage: 40 MG, ORAL
     Route: 048
     Dates: start: 20080101
  2. NICARDIPINE (NICARDIPINE) (NICARDIPINE) [Concomitant]

REACTIONS (1)
  - PEYRONIE'S DISEASE [None]
